FAERS Safety Report 7405116-3 (Version None)
Quarter: 2011Q1

REPORT INFORMATION
  Report Type: 
  Country: None (occurrence: None)
  Receive Date: 20110330
  Receipt Date: 20110316
  Transmission Date: 20110831
  Serious: Yes (Hospitalization, Other)
  Sender: FDA-Public Use
  Company Number: 2011P1004392

PATIENT
  Age: 71 Year
  Sex: Female
  Weight: 56.6996 kg

DRUGS (2)
  1. FENTANYL [Suspect]
     Indication: PAIN
     Dosage: 2 PATCHES; Q72H,TDER
  2. PREDNISONE [Suspect]

REACTIONS (31)
  - DYSSTASIA [None]
  - MEMORY IMPAIRMENT [None]
  - ESCHERICHIA TEST POSITIVE [None]
  - FATIGUE [None]
  - VOMITING [None]
  - DYSPHAGIA [None]
  - PANCYTOPENIA [None]
  - DIASTOLIC DYSFUNCTION [None]
  - DECREASED APPETITE [None]
  - CARDIOMEGALY [None]
  - ORAL CANDIDIASIS [None]
  - DYSPNOEA [None]
  - BLOOD GLUCOSE INCREASED [None]
  - WEIGHT DECREASED [None]
  - CARDIAC FAILURE CONGESTIVE [None]
  - CARDIAC DISORDER [None]
  - DIARRHOEA [None]
  - AORTIC VALVE STENOSIS [None]
  - ELECTROLYTE IMBALANCE [None]
  - HYPERKALAEMIA [None]
  - HYPOMAGNESAEMIA [None]
  - FALL [None]
  - ASTHENIA [None]
  - LEFT ATRIAL DILATATION [None]
  - ATRIAL FIBRILLATION [None]
  - URINARY TRACT INFECTION [None]
  - NAUSEA [None]
  - PLEURAL EFFUSION [None]
  - ATELECTASIS [None]
  - AORTIC VALVE INCOMPETENCE [None]
  - LOBAR PNEUMONIA [None]
